FAERS Safety Report 9170500 (Version 2)
Quarter: 2013Q2

REPORT INFORMATION
  Report Type: Report from Study
  Country: JP (occurrence: JP)
  Receive Date: 20130319
  Receipt Date: 20130605
  Transmission Date: 20140414
  Serious: Yes (Other)
  Sender: FDA-Public Use
  Company Number: JP-JNJFOC-20130304529

PATIENT
  Age: 43 Year
  Sex: Male
  Weight: 69 kg

DRUGS (6)
  1. INVEGA [Suspect]
     Indication: SCHIZOPHRENIA, UNDIFFERENTIATED TYPE
     Route: 048
     Dates: start: 20111219, end: 20121115
  2. INVEGA [Suspect]
     Indication: SCHIZOPHRENIA, UNDIFFERENTIATED TYPE
     Route: 048
     Dates: start: 20111123, end: 20111218
  3. SENIRAN [Concomitant]
     Indication: SCHIZOPHRENIA, UNDIFFERENTIATED TYPE
     Route: 048
     Dates: end: 20121115
  4. PAXIL CR [Concomitant]
     Indication: BIPOLAR I DISORDER
     Route: 048
     Dates: start: 20120809, end: 20121115
  5. LIMAS [Concomitant]
     Indication: BIPOLAR I DISORDER
     Route: 048
     Dates: start: 20120712, end: 20121115
  6. ROHYPNOL [Concomitant]
     Indication: SCHIZOPHRENIA, UNDIFFERENTIATED TYPE
     Route: 048
     Dates: end: 20121115

REACTIONS (2)
  - Extrapyramidal disorder [Recovering/Resolving]
  - Hyperglycaemia [Not Recovered/Not Resolved]
